FAERS Safety Report 5699655-3 (Version None)
Quarter: 2008Q2

REPORT INFORMATION
  Report Type: 
  Country: None (occurrence: None)
  Receive Date: 20080410
  Receipt Date: 20080404
  Transmission Date: 20081010
  Serious: Yes (Death, Hospitalization)
  Sender: FDA-Public Use
  Company Number: PHRM2008FR01183

PATIENT
  Age: 54 Year
  Sex: Male

DRUGS (3)
  1. ZOMETA [Suspect]
     Indication: MULTIPLE MYELOMA
     Route: 042
  2. CORTICOSTEROID NOS [Concomitant]
     Indication: MULTIPLE MYELOMA
  3. ANTINEOPLASTIC AGENTS [Concomitant]
     Indication: MULTIPLE MYELOMA

REACTIONS (5)
  - BONE DISORDER [None]
  - CONDITION AGGRAVATED [None]
  - DENTAL CARE [None]
  - MULTIPLE MYELOMA [None]
  - OSTEONECROSIS [None]
